FAERS Safety Report 16079592 (Version 1)
Quarter: 2019Q1

REPORT INFORMATION
  Report Type: Spontaneous
  Country: JP (occurrence: JP)
  Receive Date: 20190315
  Receipt Date: 20190315
  Transmission Date: 20190418
  Serious: Yes (Hospitalization, Other)
  Sender: FDA-Public Use
  Company Number: JP-UCBSA-2019011238

PATIENT
  Age: 50 Year
  Sex: Male

DRUGS (7)
  1. LEVETIRACETAM. [Suspect]
     Active Substance: LEVETIRACETAM
     Indication: SEIZURE
     Dosage: 3000 MG/DAY
     Route: 048
  2. TOPIRAMATE. [Concomitant]
     Active Substance: TOPIRAMATE
     Dosage: DOSE REDUCED
  3. PHENYTOIN. [Concomitant]
     Active Substance: PHENYTOIN
     Indication: SEIZURE
     Dosage: 275 MG/DAY
  4. LAMOTRIGINE. [Concomitant]
     Active Substance: LAMOTRIGINE
     Indication: SEIZURE
     Dosage: 100 MG/DAY
  5. TOPIRAMATE. [Concomitant]
     Active Substance: TOPIRAMATE
     Indication: SEIZURE
     Dosage: 250 MG/DAY
  6. VALPROIC ACID. [Concomitant]
     Active Substance: VALPROIC ACID
     Indication: SEIZURE
     Dosage: 1700 MG/DAY
  7. PERAMPANEL [Concomitant]
     Active Substance: PERAMPANEL
     Indication: SEIZURE
     Dosage: UNK

REACTIONS (9)
  - Depression [Recovering/Resolving]
  - Seizure [Unknown]
  - Dizziness [Unknown]
  - Hallucination, auditory [Recovering/Resolving]
  - Delusion [Recovering/Resolving]
  - Focal dyscognitive seizures [Unknown]
  - Insomnia [Recovering/Resolving]
  - Psychotic disorder [Recovering/Resolving]
  - Decreased appetite [Recovering/Resolving]
